FAERS Safety Report 7999658-X (Version None)
Quarter: 2011Q4

REPORT INFORMATION
  Report Type: 
  Country: None (occurrence: None)
  Receive Date: 20111221
  Receipt Date: 20111216
  Transmission Date: 20120403
  Serious: Yes (Death)
  Sender: FDA-Public Use
  Company Number: US-ASTRAZENECA-2011SE76917

PATIENT
  Age: 19 Year
  Sex: Male

DRUGS (3)
  1. PAROXETINE HCL [Suspect]
     Route: 048
  2. QUETIAPINE [Suspect]
     Route: 048
  3. IBUPROFEN [Suspect]
     Route: 048

REACTIONS (3)
  - CARDIO-RESPIRATORY ARREST [None]
  - COMPLETED SUICIDE [None]
  - TOXICITY TO VARIOUS AGENTS [None]
